FAERS Safety Report 6477856-4 (Version None)
Quarter: 2009Q4

REPORT INFORMATION
  Report Type: 
  Country: None (occurrence: None)
  Receive Date: 20091207
  Receipt Date: 20091126
  Transmission Date: 20100525
  Serious: Yes (Death, Other)
  Sender: FDA-Public Use
  Company Number: ES-JNJFOC-20091201141

PATIENT
  Age: 66 Year
  Sex: Male

DRUGS (1)
  1. REMICADE [Suspect]
     Indication: RHEUMATOID ARTHRITIS
     Route: 042
     Dates: start: 20010523, end: 20090209

REACTIONS (4)
  - DEATH [None]
  - HERPES ZOSTER [None]
  - PLEURAL EFFUSION [None]
  - RESPIRATORY TRACT INFECTION [None]
